FAERS Safety Report 7967174-7 (Version None)
Quarter: 2011Q4

REPORT INFORMATION
  Report Type: 
  Country: None (occurrence: None)
  Receive Date: 20111209
  Receipt Date: 20111205
  Transmission Date: 20120403
  Serious: Yes (Other)
  Sender: FDA-Public Use
  Company Number: GB-PFIZER INC-2011242140

PATIENT
  Age: 71 Year
  Sex: Female

DRUGS (2)
  1. LYRICA [Suspect]
     Indication: PAIN MANAGEMENT
     Dosage: 150 MG, 2X/DAY
     Route: 048
     Dates: end: 20110201
  2. SINEMET [Concomitant]
     Indication: RESTLESS LEGS SYNDROME
     Dosage: 3 DF, 1X/DAY
     Route: 048

REACTIONS (3)
  - VISION BLURRED [None]
  - GLAUCOMA [None]
  - CONDITION AGGRAVATED [None]
